FAERS Safety Report 9227954 (Version 1)
Quarter: 2013Q1

REPORT INFORMATION
  Report Type: Spontaneous
  Country: US (occurrence: None)
  Receive Date: 20121031
  Receipt Date: 20121031
  Transmission Date: 20140127
  Serious: No
  Sender: FDA-Public Use
  Company Number: PHEH2012US015545

PATIENT
  Age: 52 Year
  Sex: Female
  Weight: 68 kg

DRUGS (8)
  1. GILENYA (FTY)CAPSULE, 0.5MG [Suspect]
     Indication: MULTIPLE SCLEROSIS
     Route: 048
     Dates: start: 201206
  2. GABAPENTIN (GABAPENTIN) [Concomitant]
  3. CALCIUM (CALCIUM) [Concomitant]
  4. IRON (IRON) [Concomitant]
  5. CITALOPRAM (CITALOPRAM [Concomitant]
  6. ENALAPRIL (ENALPRIL) [Concomitant]
  7. HYDROCHLOROTHIAZIDE (HYDROCHLORTHIAZIDE) [Concomitant]
  8. ADDERALL (AMFETAMINE ASPARTATE, AMFETAMINE SULFATE, DEXAMFETAMINE SCCHARATE, DEXAMFETAMINE SULFATE) [Concomitant]

REACTIONS (2)
  - Nausea [None]
  - Dizziness [None]
